FAERS Safety Report 17207973 (Version 8)
Quarter: 2021Q2

REPORT INFORMATION
  Report Type: Report from Study
  Country: JP (occurrence: JP)
  Receive Date: 20191227
  Receipt Date: 20210426
  Transmission Date: 20210716
  Serious: Yes (Other)
  Sender: FDA-Public Use
  Company Number: JP-ALNYLAM-ALN-2019-000988AA

PATIENT

DRUGS (11)
  1. LOPERAMIDE [Concomitant]
     Active Substance: LOPERAMIDE
     Indication: HEREDITARY NEUROPATHIC AMYLOIDOSIS
     Dosage: 1 MILLIGRAM, TID
     Route: 065
  2. COLONEL [Concomitant]
     Active Substance: CALCIUM POLYCARBOPHIL
     Indication: HEREDITARY NEUROPATHIC AMYLOIDOSIS
     Dosage: 500 MILLIGRAM, TID
     Route: 065
  3. ONPATTRO [Suspect]
     Active Substance: PATISIRAN SODIUM
     Indication: HEREDITARY NEUROPATHIC AMYLOIDOSIS
     Dosage: 19.3 MILLIGRAM
     Route: 041
     Dates: start: 20191218, end: 20200108
  4. DEXART [Concomitant]
     Active Substance: DEXAMETHASONE SODIUM PHOSPHATE
     Indication: PROPHYLAXIS
     Dosage: 9.9 MILLIGRAM PER MILLILITRE, SINGLE
     Route: 042
     Dates: start: 20191218, end: 20200108
  5. GASTER [Concomitant]
     Active Substance: FAMOTIDINE
     Indication: PROPHYLAXIS
     Dosage: 20 MILLIGRAM, SINGLE
     Route: 042
     Dates: start: 20191218, end: 20200108
  6. PANVITAN [Concomitant]
     Active Substance: VITAMINS
     Indication: PROPHYLAXIS
     Dosage: 1 GRAM
     Route: 065
     Dates: start: 20191218, end: 20200108
  7. POLARAMINE [Concomitant]
     Active Substance: DEXCHLORPHENIRAMINE MALEATE
     Indication: PROPHYLAXIS
     Dosage: 5 MILLIGRAM, SINGLE
     Route: 042
     Dates: start: 20191218, end: 20200108
  8. DOPS [Concomitant]
     Active Substance: DROXIDOPA
     Indication: HEREDITARY NEUROPATHIC AMYLOIDOSIS
     Dosage: 100 MILLIGRAM, TID
     Route: 065
  9. VYNDAQEL [Concomitant]
     Active Substance: TAFAMIDIS MEGLUMINE
     Indication: HEREDITARY NEUROPATHIC AMYLOIDOSIS
     Dosage: 20 MILLIGRAM, SINGLE
     Route: 065
     Dates: start: 20200130
  10. CALONAL [Concomitant]
     Active Substance: ACETAMINOPHEN
     Indication: PROPHYLAXIS
     Dosage: 500 MILLIGRAM
     Route: 048
     Dates: start: 20191218, end: 20200108
  11. RISUMIC [Concomitant]
     Active Substance: AMEZINIUM METILSULFATE
     Indication: HEREDITARY NEUROPATHIC AMYLOIDOSIS
     Dosage: 10 MILLIGRAM, BID
     Route: 065

REACTIONS (13)
  - Urticaria [Recovering/Resolving]
  - Prurigo [Recovered/Resolved]
  - Infusion related reaction [Recovered/Resolved]
  - Prurigo [Recovered/Resolved]
  - Pain [Recovered/Resolved]
  - Pruritus [Recovered/Resolved]
  - Pain [Recovered/Resolved]
  - Back pain [Recovered/Resolved]
  - Pruritus [Recovered/Resolved]
  - Swollen tongue [Recovered/Resolved]
  - Back pain [Recovered/Resolved]
  - Rash [Recovered/Resolved]
  - Infusion related reaction [Recovered/Resolved]

NARRATIVE: CASE EVENT DATE: 20191218
